FAERS Safety Report 6793536-X (Version None)
Quarter: 2010Q2

REPORT INFORMATION
  Report Type: 
  Country: None (occurrence: None)
  Receive Date: 20100624
  Receipt Date: 20081211
  Transmission Date: 20101027
  Serious: No
  Sender: FDA-Public Use
  Company Number: US-PFIZER INC-2008152883

PATIENT
  Age: 59 Year
  Sex: Male
  Weight: 92.079 kg

DRUGS (2)
  1. CADUET [Suspect]
     Indication: BLOOD CHOLESTEROL INCREASED
     Dosage: 10/10, 1X/DAY
     Dates: start: 20070101
  2. CADUET [Suspect]
     Indication: HYPERTENSION

REACTIONS (1)
  - EXPIRED DRUG ADMINISTERED [None]
